FAERS Safety Report 21810433 (Version 1)
Quarter: 2023Q1

REPORT INFORMATION
  Report Type: Report from Study
  Country: US (occurrence: US)
  Receive Date: 20230103
  Receipt Date: 20230103
  Transmission Date: 20230417
  Serious: No
  Sender: FDA-Public Use
  Company Number: US-ABBVIE-4213976

PATIENT
  Sex: Female

DRUGS (1)
  1. SKYRIZI [Suspect]
     Active Substance: RISANKIZUMAB-RZAA
     Indication: Illness
     Dosage: FORM STRENGTH- 150 MILLIGRAM
     Route: 058
     Dates: start: 2021

REACTIONS (5)
  - Injection site pain [Unknown]
  - Headache [Unknown]
  - Arthritis [Not Recovered/Not Resolved]
  - Alopecia [Unknown]
  - Swelling [Not Recovered/Not Resolved]
